FAERS Safety Report 11719618 (Version 1)
Quarter: 2015Q4

REPORT INFORMATION
  Report Type: Spontaneous
  Country: US (occurrence: None)
  Receive Date: 20151109
  Receipt Date: 20151109
  Transmission Date: 20160304
  Serious: Yes (Other)
  Sender: FDA-Public Use
  Company Number: None

PATIENT
  Age: 37 Year
  Sex: Female
  Weight: 81.65 kg

DRUGS (1)
  1. LEVOTHYROXINE. [Suspect]
     Active Substance: LEVOTHYROXINE
     Indication: HYPOTHYROIDISM
     Dosage: 1 PILL
     Route: 048
     Dates: start: 20150103, end: 20151026

REACTIONS (5)
  - Depression [None]
  - Nervousness [None]
  - Amenorrhoea [None]
  - Weight increased [None]
  - Palpitations [None]

NARRATIVE: CASE EVENT DATE: 20151026
